FAERS Safety Report 5041265-5 (Version None)
Quarter: 2006Q3

REPORT INFORMATION
  Report Type: 
  Country: None (occurrence: None)
  Receive Date: 20060703
  Receipt Date: 20060630
  Transmission Date: 20061208
  Serious: Yes (Death, Hospitalization)
  Sender: FDA-Public Use
  Company Number: BW-BRISTOL-MYERS SQUIBB COMPANY-13430053

PATIENT
  Age: 36 Year
  Sex: Male

DRUGS (5)
  1. STAVUDINE [Suspect]
     Indication: HIV INFECTION
     Route: 048
     Dates: start: 20050929, end: 20060220
  2. EFAVIRENZ [Suspect]
     Indication: HIV INFECTION
     Route: 048
     Dates: start: 20050516, end: 20060220
  3. LAMIVUDINE [Suspect]
     Indication: HIV INFECTION
     Route: 048
     Dates: start: 20050516, end: 20060220
  4. RIFAMPICIN [Concomitant]
     Dates: start: 20051005, end: 20060323
  5. ISONIAZID [Concomitant]
     Dates: start: 20051005, end: 20060323

REACTIONS (2)
  - DEHYDRATION [None]
  - HEPATOTOXICITY [None]
